FAERS Safety Report 8899945 (Version 2)
Quarter: 2012Q4

REPORT INFORMATION
  Report Type: 
  Country: DE (occurrence: DE)
  Receive Date: 20121109
  Receipt Date: 20121112
  Transmission Date: 20130627
  Serious: Yes (Death, Other)
  Sender: FDA-Public Use
  Company Number: PHHY2012DE102733

PATIENT
  Age: 52 Year
  Sex: Female

DRUGS (12)
  1. DOXEPIN [Suspect]
     Dosage: 25 mg, UNK
  2. DOXEPIN [Interacting]
     Dosage: 100 mg, UNK
  3. DOXEPIN [Interacting]
     Dosage: 125 mg, UNK
  4. AMLODIPINE [Interacting]
     Dosage: 2.5 mg, UNK
  5. AMLODIPINE [Interacting]
     Dosage: 7.5 mg, UNK
  6. AMLODIPINE [Interacting]
     Dosage: 10 mg, UNK
  7. OLANZAPINE [Interacting]
  8. DIAZEPAM [Interacting]
  9. PROTHIPENDYL [Interacting]
  10. TILIDINE [Concomitant]
  11. METOPROLOL [Concomitant]
  12. IBUPROFEN [Concomitant]

REACTIONS (7)
  - Toxicity to various agents [Fatal]
  - Drug interaction [Unknown]
  - Somnolence [Unknown]
  - Drooling [Unknown]
  - Gait disturbance [Unknown]
  - Pain [Unknown]
  - Insomnia [Unknown]
